FAERS Safety Report 9223565 (Version 1)
Quarter: 2013Q2

REPORT INFORMATION
  Report Type: Spontaneous
  Country: CA (occurrence: CA)
  Receive Date: 20130410
  Receipt Date: 20130410
  Transmission Date: 20140414
  Serious: Yes (Other)
  Sender: FDA-Public Use
  Company Number: CA-GLAXOSMITHKLINE-A1018944A

PATIENT
  Age: 55 Year
  Sex: Female

DRUGS (1)
  1. REQUIP [Suspect]
     Indication: MUSCULOSKELETAL DISORDER
     Dosage: .25MG PER DAY
     Route: 065
     Dates: start: 20130404

REACTIONS (1)
  - Monoplegia [Unknown]
